FAERS Safety Report 12379636 (Version 2)
Quarter: 2016Q2

REPORT INFORMATION
  Report Type: Spontaneous
  Country: JP (occurrence: JP)
  Receive Date: 20160518
  Receipt Date: 20160520
  Transmission Date: 20160815
  Serious: Yes (Hospitalization)
  Sender: FDA-Public Use
  Company Number: JP-AMGEN-JPNSP2016061821

PATIENT
  Age: 78 Year
  Sex: Female

DRUGS (3)
  1. EDIROL [Concomitant]
     Active Substance: ELDECALCITOL
     Indication: MINERAL SUPPLEMENTATION
     Dosage: 0.75 MUG, QD
     Route: 048
  2. PRALIA [Suspect]
     Active Substance: DENOSUMAB
     Indication: OSTEOPOROSIS
     Dosage: 60 MG, Q6MO
     Route: 058
     Dates: start: 20151224
  3. DIAMOX SEQUELS [Concomitant]
     Active Substance: ACETAZOLAMIDE
     Indication: INTRAOCULAR PRESSURE DECREASED
     Dosage: 250 MG, QD
     Route: 048

REACTIONS (1)
  - Hypercalcaemia [Recovered/Resolved]
